FAERS Safety Report 4285953-7 (Version None)
Quarter: 2004Q1

REPORT INFORMATION
  Report Type: 
  Country: None (occurrence: None)
  Receive Date: 20040203
  Receipt Date: 20040121
  Transmission Date: 20041129
  Serious: Yes (Life-Threatening, Hospitalization, Other)
  Sender: FDA-Public Use
  Company Number: 2004004557

PATIENT
  Age: 42 Year
  Sex: Male

DRUGS (3)
  1. NIFEDIPINE [Suspect]
     Indication: ILL-DEFINED DISORDER
  2. DILTIAZEM [Suspect]
     Indication: ILL-DEFINED DISORDER
  3. VERAPAMIL [Suspect]
     Indication: SUPRAVENTRICULAR TACHYCARDIA

REACTIONS (28)
  - ANION GAP INCREASED [None]
  - ASTHENIA [None]
  - BLOOD CREATINE PHOSPHOKINASE INCREASED [None]
  - BLOOD LACTIC ACID INCREASED [None]
  - BLOOD PRESSURE DIASTOLIC DECREASED [None]
  - BRADYCARDIA [None]
  - BUNDLE BRANCH BLOCK LEFT [None]
  - CARDIAC VENTRICULAR DISORDER [None]
  - CONFUSIONAL STATE [None]
  - CORONARY ARTERY DISEASE [None]
  - DIZZINESS [None]
  - DYSPNOEA [None]
  - EJECTION FRACTION ABNORMAL [None]
  - ELECTROCARDIOGRAM QRS COMPLEX SHORTENED [None]
  - FEELING ABNORMAL [None]
  - HYPERHIDROSIS [None]
  - HYPOPERFUSION [None]
  - HYPOTENSION [None]
  - HYPOXIA [None]
  - ISCHAEMIA [None]
  - METABOLIC ACIDOSIS [None]
  - MUSCLE NECROSIS [None]
  - MYOCARDIAL INFARCTION [None]
  - OVERDOSE [None]
  - OXYGEN SATURATION DECREASED [None]
  - PALPITATIONS [None]
  - PULMONARY OEDEMA [None]
  - TROPONIN T INCREASED [None]
